FAERS Safety Report 6092551-1 (Version None)
Quarter: 2009Q1

REPORT INFORMATION
  Report Type: 
  Country: None (occurrence: None)
  Receive Date: 20090225
  Receipt Date: 20090218
  Transmission Date: 20090719
  Serious: Yes (Hospitalization)
  Sender: FDA-Public Use
  Company Number: US-ELI_LILLY_AND_COMPANY-US200902004714

PATIENT
  Sex: Female

DRUGS (3)
  1. HUMALOG [Suspect]
     Indication: DIABETES MELLITUS
     Dates: start: 20070101
  2. HUMALOG [Suspect]
  3. LANTUS [Concomitant]
     Indication: DIABETES MELLITUS

REACTIONS (4)
  - ANAEMIA [None]
  - PAIN [None]
  - RENAL FAILURE [None]
  - SURGERY [None]
